FAERS Safety Report 20875311 (Version 3)
Quarter: 2022Q2

REPORT INFORMATION
  Report Type: Spontaneous
  Country: EG (occurrence: EG)
  Receive Date: 20220526
  Receipt Date: 20220627
  Transmission Date: 20220721
  Serious: Yes (Life-Threatening, Hospitalization)
  Sender: FDA-Public Use
  Company Number: EG-NOVOPROD-919431

PATIENT
  Age: 215 Month
  Sex: Female
  Weight: 60 kg

DRUGS (4)
  1. LANTUS [Concomitant]
     Active Substance: INSULIN GLARGINE
     Indication: Type 1 diabetes mellitus
     Dosage: 15 IU, QD (AT NIGHT STARTED FROM 3 YEARS)
     Route: 058
  2. ACTRAPID [Suspect]
     Active Substance: INSULIN HUMAN
     Dosage: 55 IU, QD (20U- 20U -15U )
     Route: 058
  3. ACTRAPID [Suspect]
     Active Substance: INSULIN HUMAN
     Dosage: 55 IU, QD (20U- 20U -15U )-RESTARTED
     Route: 058
  4. ACTRAPID [Suspect]
     Active Substance: INSULIN HUMAN
     Indication: Type 1 diabetes mellitus
     Dosage: 40 IU, QD(15+15+10 IU)
     Route: 058

REACTIONS (2)
  - Urine ketone body present [Unknown]
  - Hyperglycaemia [Recovered/Resolved]

NARRATIVE: CASE EVENT DATE: 20220506
